FAERS Safety Report 12260016 (Version 1)
Quarter: 2016Q2

REPORT INFORMATION
  Report Type: Spontaneous
  Country: US (occurrence: US)
  Receive Date: 20160412
  Receipt Date: 20160412
  Transmission Date: 20160815
  Serious: No
  Sender: FDA-Public Use
  Company Number: US-SA-2015SA167181

PATIENT
  Sex: Female

DRUGS (1)
  1. ALLEGRA [Suspect]
     Active Substance: FEXOFENADINE HYDROCHLORIDE
     Indication: SEASONAL ALLERGY
     Dosage: TOOK FROM 1 WEEK
     Route: 065

REACTIONS (4)
  - Flatulence [Unknown]
  - Rash [Unknown]
  - Glossodynia [Unknown]
  - Nausea [Unknown]
